FAERS Safety Report 7456705-1 (Version None)
Quarter: 2011Q2

REPORT INFORMATION
  Report Type: 
  Country: None (occurrence: None)
  Receive Date: 20110503
  Receipt Date: 20110429
  Transmission Date: 20111010
  Serious: No
  Sender: FDA-Public Use
  Company Number: US-TEVA-278936USA

PATIENT
  Sex: Male
  Weight: 71.732 kg

DRUGS (4)
  1. ALPRAZOLAM [Concomitant]
  2. TIOTROPIUM BROMIDE [Concomitant]
  3. PROAIR HFA [Suspect]
     Indication: CHRONIC OBSTRUCTIVE PULMONARY DISEASE
     Dosage: 90 MICROGRAM;
     Route: 055
     Dates: start: 20110428, end: 20110428
  4. SERETIDE                           /01420901/ [Concomitant]

REACTIONS (1)
  - LUNG DISORDER [None]
